FAERS Safety Report 4633831-3 (Version None)
Quarter: 2005Q2

REPORT INFORMATION
  Report Type: 
  Country: None (occurrence: None)
  Receive Date: 20050413
  Receipt Date: 20050117
  Transmission Date: 20051028
  Serious: Yes (Death)
  Sender: FDA-Public Use
  Company Number: GB-BOEHRINGER INGELHEIM PHARMACEUTICALS, INC.-2005-UK-00089UK

PATIENT
  Sex: Female

DRUGS (9)
  1. ATROVENT [Suspect]
     Indication: CHRONIC OBSTRUCTIVE PULMONARY DISEASE
     Dosage: FOUR TIMES A DAY
     Route: 055
  2. SALBUTAMOL CFC-FREE INHALER [Concomitant]
     Dosage: 2 PUFFS FOUR TIMES A DAY AS REQUIRED
  3. SALBUTAMOL NEBULISER SOLUTION [Concomitant]
     Dosage: 2.5MG/2.5 ML FOUR TIMES DAILY AS REQUIRED
  4. AMINOPHYLLINE [Concomitant]
     Dosage: ONE TO BE TAKEN DAILY
  5. LEVOFLOXACIN [Concomitant]
     Dosage: ONE TO BE TAKEN TWICE A DAY
  6. PREDNISOLONE [Concomitant]
     Dosage: 5 MG AS DIRECTED
  7. FUROSEMIDE [Concomitant]
     Dosage: ONE TO BE TAKEN DAILY
  8. CARBOCISTEINE [Concomitant]
     Dosage: TWO TO BE TAKEN 3 TIMES A DAY
  9. TRAMADOL HCL [Concomitant]
     Dosage: ONE THREE TIMES DAILY

REACTIONS (1)
  - CHRONIC OBSTRUCTIVE AIRWAYS DISEASE EXACERBATED [None]
